FAERS Safety Report 13484445 (Version 1)
Quarter: 2017Q2

REPORT INFORMATION
  Report Type: Report from Study
  Country: US (occurrence: US)
  Receive Date: 20170426
  Receipt Date: 20170426
  Transmission Date: 20170830
  Serious: Yes (Other)
  Sender: FDA-Public Use
  Company Number: PHEH2017US011641

PATIENT
  Sex: Female

DRUGS (1)
  1. VOTRIENT [Suspect]
     Active Substance: PAZOPANIB HYDROCHLORIDE
     Indication: PRODUCT USED FOR UNKNOWN INDICATION
     Route: 065

REACTIONS (9)
  - Neoplasm malignant [Unknown]
  - Weight decreased [Unknown]
  - Skin depigmentation [Unknown]
  - Cachexia [Unknown]
  - Amnesia [Unknown]
  - Hair colour changes [Unknown]
  - Diarrhoea [Unknown]
  - Cow^s milk intolerance [Unknown]
  - Panic attack [Unknown]
